FAERS Safety Report 17595930 (Version 1)
Quarter: 2020Q1

REPORT INFORMATION
  Report Type: Report from Study
  Country: US (occurrence: US)
  Receive Date: 20200329
  Receipt Date: 20200329
  Transmission Date: 20200409
  Serious: Yes (Other)
  Sender: FDA-Public Use
  Company Number: US-BAXTER-2020BAX006903

PATIENT
  Age: 67 Year
  Sex: Female

DRUGS (5)
  1. BLEOMYCIN [Suspect]
     Active Substance: BLEOMYCIN SULFATE
     Indication: HODGKIN^S DISEASE STAGE III
     Dosage: RECEIVED 6 CYCLES OF ABVD THERAPY
     Route: 065
  2. DEXRAZOXANE. [Concomitant]
     Active Substance: DEXRAZOXANE
     Indication: PROPHYLAXIS
     Route: 065
  3. DOXIL [Suspect]
     Active Substance: DOXORUBICIN HYDROCHLORIDE
     Indication: HODGKIN^S DISEASE STAGE III
     Dosage: RECEIVED 6 CYCLES OF ABVD THERAPY
     Route: 065
  4. VINBLASTINE [Suspect]
     Active Substance: VINBLASTINE
     Indication: HODGKIN^S DISEASE STAGE III
     Dosage: RECEIVED 6 CYCLES OF ABVD THERAPY
     Route: 065
  5. DACARBAZINE. [Suspect]
     Active Substance: DACARBAZINE
     Indication: HODGKIN^S DISEASE STAGE III
     Dosage: RECEIVED 6 CYCLES OF ABVD THERAPY
     Route: 065

REACTIONS (1)
  - Ventricular tachycardia [Unknown]
